FAERS Safety Report 5582074-8 (Version None)
Quarter: 2007Q4

REPORT INFORMATION
  Report Type: 
  Country: None (occurrence: None)
  Receive Date: 20071130
  Receipt Date: 20070724
  Transmission Date: 20080405
  Serious: No
  Sender: FDA-Public Use
  Company Number: US200706001722

PATIENT
  Age: 61 Year
  Sex: Female
  Weight: 127 kg

DRUGS (9)
  1. BYETTA [Suspect]
     Indication: TYPE 2 DIABETES MELLITUS
     Dosage: 5 UG, 2/D, SUBCUTANEOUS ; 10 UG, 2/D, SUBCUTANEOUS ; 5 UG, 3/D, SUBCUTANEOUS
     Route: 058
     Dates: start: 20061201, end: 20070101
  2. BYETTA [Suspect]
     Indication: TYPE 2 DIABETES MELLITUS
     Dosage: 5 UG, 2/D, SUBCUTANEOUS ; 10 UG, 2/D, SUBCUTANEOUS ; 5 UG, 3/D, SUBCUTANEOUS
     Route: 058
     Dates: start: 20070101, end: 20070101
  3. BYETTA [Suspect]
     Indication: TYPE 2 DIABETES MELLITUS
     Dosage: 5 UG, 2/D, SUBCUTANEOUS ; 10 UG, 2/D, SUBCUTANEOUS ; 5 UG, 3/D, SUBCUTANEOUS
     Route: 058
     Dates: start: 20070101, end: 20070101
  4. AVANDIA [Concomitant]
  5. AMARYL [Concomitant]
  6. LANTUS [Concomitant]
  7. VOLTAREN /SCH/ (DICLOFENAC POTASSIUM) [Concomitant]
  8. TRAMADOL HCL [Concomitant]
  9. TYLENOL /USA/ (PARACETAMOL) [Concomitant]

REACTIONS (7)
  - CONSTIPATION [None]
  - DYSGEUSIA [None]
  - HEADACHE [None]
  - INCORRECT DOSE ADMINISTERED [None]
  - INCREASED APPETITE [None]
  - NAUSEA [None]
  - WEIGHT DECREASED [None]
